FAERS Safety Report 9295972 (Version 1)
Quarter: 2013Q2

REPORT INFORMATION
  Report Type: Spontaneous
  Country: US (occurrence: US)
  Receive Date: 20130517
  Receipt Date: 20130517
  Transmission Date: 20140414
  Serious: No
  Sender: FDA-Public Use
  Company Number: US-TEVA-405927USA

PATIENT
  Age: 18 Year
  Sex: Female
  Weight: 55.84 kg

DRUGS (2)
  1. PLAN B ONE-STEP [Suspect]
     Indication: POST COITAL CONTRACEPTION
     Dosage: 1.5 MILLIGRAM DAILY;
     Route: 048
     Dates: start: 20130428, end: 20130428
  2. PLAN B ONE-STEP [Suspect]
     Dosage: 1.5 MILLIGRAM DAILY;
     Route: 048
     Dates: start: 20130429, end: 20130429

REACTIONS (3)
  - Abdominal pain upper [Not Recovered/Not Resolved]
  - Menstruation delayed [Recovered/Resolved]
  - Menstruation irregular [Not Recovered/Not Resolved]
